FAERS Safety Report 21328269 (Version 1)
Quarter: 2022Q3

REPORT INFORMATION
  Report Type: Spontaneous
  Country: US (occurrence: None)
  Receive Date: 20220912
  Receipt Date: 20220912
  Transmission Date: 20221027
  Serious: Yes (Life-Threatening, Hospitalization)
  Sender: FDA-Public Use
  Company Number: None

PATIENT
  Age: 52 Year
  Sex: Male
  Weight: 65.4 kg

DRUGS (7)
  1. HALOPERIDOL [Suspect]
     Active Substance: HALOPERIDOL
     Indication: Mood altered
     Dates: start: 20220715, end: 20220719
  2. HALOPERIDOL [Suspect]
     Active Substance: HALOPERIDOL
     Indication: Treatment noncompliance
  3. Benztropine - 1mg by mouth daily as needed for EPS [Concomitant]
  4. Diphenhydramine - 50mg IM or by mouth as needed every 6 hours [Concomitant]
  5. Lorazepam - 2mg IM or PO every 6 hours as needed for agitation [Concomitant]
  6. Paliperidone - 6mg ER every morning (Patient non-compliant at times) [Concomitant]
  7. Olanzapine - 10mg IM once on 7/15/2022 [Concomitant]

REACTIONS (10)
  - Product substitution issue [None]
  - Drooling [None]
  - Hyperhidrosis [None]
  - Muscle rigidity [None]
  - Tachycardia [None]
  - Unresponsive to stimuli [None]
  - Eye movement disorder [None]
  - Neuroleptic malignant syndrome [None]
  - Agitation [None]
  - Drug hypersensitivity [None]

NARRATIVE: CASE EVENT DATE: 20220719
